FAERS Safety Report 15326467 (Version 1)
Quarter: 2018Q3

REPORT INFORMATION
  Report Type: Spontaneous
  Country: US (occurrence: US)
  Receive Date: 20180828
  Receipt Date: 20180828
  Transmission Date: 20181010
  Serious: Yes (Other)
  Sender: FDA-Public Use
  Company Number: US-BAYER-2018-160972

PATIENT
  Sex: Male

DRUGS (1)
  1. ALKA?SELTZER ORIGINAL [Suspect]
     Active Substance: ANHYDROUS CITRIC ACID\ASPIRIN\SODIUM BICARBONATE
     Dosage: UNK
     Route: 065
     Dates: start: 2003

REACTIONS (2)
  - Gastric haemorrhage [Unknown]
  - Dyspepsia [Unknown]

NARRATIVE: CASE EVENT DATE: 2003
